FAERS Safety Report 20949415 (Version 4)
Quarter: 2022Q2

REPORT INFORMATION
  Report Type: Spontaneous
  Country: US (occurrence: US)
  Receive Date: 20220613
  Receipt Date: 20220630
  Transmission Date: 20220721
  Serious: Yes (Other)
  Sender: FDA-Public Use
  Company Number: US-ORGANON-O2206USA000777

PATIENT
  Age: 17 Year
  Sex: Female
  Weight: 166.89 kg

DRUGS (4)
  1. NEXPLANON [Suspect]
     Active Substance: ETONOGESTREL
     Dosage: 1 IMPLANT
     Route: 059
     Dates: end: 20211214
  2. NEXPLANON [Suspect]
     Active Substance: ETONOGESTREL
     Dosage: 1 IMPLANT OF 68 MG ONCE (RIGHT ARM)
     Route: 058
     Dates: start: 20211214, end: 20220607
  3. NEXPLANON [Suspect]
     Active Substance: ETONOGESTREL
     Indication: Contraception
     Dosage: 1 DOSAGE FORM
     Route: 058
     Dates: start: 20220607
  4. NEXPLANON [Suspect]
     Active Substance: ETONOGESTREL
     Indication: Heavy menstrual bleeding

REACTIONS (5)
  - Device dislocation [Recovered/Resolved]
  - Device breakage [Recovered/Resolved]
  - Medical device site discomfort [Recovered/Resolved]
  - Device placement issue [Recovered/Resolved]
  - Product use in unapproved indication [Unknown]

NARRATIVE: CASE EVENT DATE: 20211214
